FAERS Safety Report 5121288-8 (Version None)
Quarter: 2006Q4

REPORT INFORMATION
  Report Type: 
  Country: None (occurrence: None)
  Receive Date: 20061002
  Receipt Date: 20060920
  Transmission Date: 20070319
  Serious: Yes (Death, Hospitalization)
  Sender: FDA-Public Use
  Company Number: 2006113130

PATIENT
  Age: 63 Year
  Sex: Female
  Weight: 56.8 kg

DRUGS (5)
  1. FRAGMIN [Suspect]
     Indication: PULMONARY EMBOLISM
     Dates: start: 20040101, end: 20040101
  2. DOXORUBICIN HCL [Suspect]
     Indication: BREAST CANCER METASTATIC
     Dosage: 60 MG/M2 (1 IN 2 WK), INTRAVENOUS
     Route: 042
     Dates: start: 20031124
  3. INVESTIGATIONAL DRUG (INVESTIGATIONAL DRUG) [Suspect]
     Indication: BREAST CANCER METASTATIC
     Dosage: 200 MG, (2 IN 1 D); ORAL
     Route: 048
     Dates: start: 20031125, end: 20040110
  4. CYCLOPHOSPHAMIDE [Suspect]
     Indication: BREAST CANCER METASTATIC
     Dosage: 600 MG/M2 (1 IN 2 WK); INTRAVENOUS
     Route: 042
     Dates: start: 20031124
  5. G-CSF (GRANULOCYTE COLONY STIMULATING FACTOR) [Suspect]
     Indication: BREAST CANCER METASTATIC
     Dosage: 5 MCG/KG, SUBCUTANEOUS
     Route: 058
     Dates: start: 20031125

REACTIONS (21)
  - CARDIAC FAILURE CONGESTIVE [None]
  - DEHYDRATION [None]
  - DYSPNOEA [None]
  - EJECTION FRACTION DECREASED [None]
  - HAEMORRHAGE [None]
  - HEART VALVE INSUFFICIENCY [None]
  - HEMIPLEGIA [None]
  - HYPOXIA [None]
  - INTRACRANIAL PRESSURE INCREASED [None]
  - METASTASIS [None]
  - NERVOUS SYSTEM DISORDER [None]
  - NEUTROPENIA [None]
  - PNEUMONIA [None]
  - PULMONARY EMBOLISM [None]
  - RESPIRATORY DISORDER [None]
  - RESPIRATORY FAILURE [None]
  - SEPSIS [None]
  - TACHYCARDIA [None]
  - TACHYPNOEA [None]
  - VENTRICULAR HYPOKINESIA [None]
  - VENTRICULAR SEPTAL DEFECT [None]
